FAERS Safety Report 6374774-7 (Version None)
Quarter: 2009Q3

REPORT INFORMATION
  Report Type: 
  Country: None (occurrence: None)
  Receive Date: 20090924
  Receipt Date: 20090914
  Transmission Date: 20100115
  Serious: Yes (Hospitalization)
  Sender: FDA-Public Use
  Company Number: PHHY2009GB34545

PATIENT
  Sex: Male

DRUGS (7)
  1. CLOZARIL [Suspect]
     Indication: SCHIZOPHRENIA
     Dosage: 400 MG, UNK
     Route: 048
     Dates: start: 19921207
  2. SULPIRIDE [Concomitant]
     Dosage: 200 MG, UNK
     Route: 048
  3. CLOMIPRAMINE [Concomitant]
     Dosage: 150 MG, UNK
     Route: 048
  4. DESLORATADINE [Concomitant]
     Dosage: 10 MG, UNK
     Route: 048
  5. DIAZEPAM [Concomitant]
     Dosage: 75 MG, UNK
     Route: 048
  6. LACTULOSE [Concomitant]
     Dosage: 10 ML, UNK
     Route: 048
  7. SIMVASTATIN [Concomitant]
     Dosage: 40 MG, UNK
     Route: 048

REACTIONS (1)
  - CELLULITIS [None]
